FAERS Safety Report 20117381 (Version 1)
Quarter: 2021Q4

REPORT INFORMATION
  Report Type: Spontaneous
  Country: US (occurrence: US)
  Receive Date: 20211126
  Receipt Date: 20211126
  Transmission Date: 20220303
  Serious: Yes (Other)
  Sender: FDA-Public Use
  Company Number: US-GLAXOSMITHKLINE-US2021GSK243344

PATIENT
  Sex: Male

DRUGS (24)
  1. ZANTAC [Suspect]
     Active Substance: RANITIDINE HYDROCHLORIDE
     Indication: Intestinal ulcer
     Dosage: 150 MG, QD
     Route: 065
     Dates: start: 198501, end: 202001
  2. ZANTAC [Suspect]
     Active Substance: RANITIDINE HYDROCHLORIDE
     Dosage: 150 MG,1 - 3 TIMES A DAY
     Route: 065
     Dates: start: 198501, end: 202001
  3. ZANTAC [Suspect]
     Active Substance: RANITIDINE HYDROCHLORIDE
     Dosage: 300 MG, QD
     Route: 065
     Dates: start: 198501, end: 202001
  4. ZANTAC [Suspect]
     Active Substance: RANITIDINE HYDROCHLORIDE
     Dosage: 300 MG, 1 - 3 TIMES A DAY
     Route: 065
     Dates: start: 198501, end: 202001
  5. ZANTAC [Suspect]
     Active Substance: RANITIDINE HYDROCHLORIDE
     Indication: Intestinal ulcer
     Dosage: 150 MG, QD
     Route: 065
     Dates: start: 198501, end: 202001
  6. ZANTAC [Suspect]
     Active Substance: RANITIDINE HYDROCHLORIDE
     Dosage: 150 MG, 1 - 3 TIMES A DAY
     Route: 065
     Dates: start: 198501, end: 202001
  7. ZANTAC [Suspect]
     Active Substance: RANITIDINE HYDROCHLORIDE
     Dosage: 300 MG, QD
     Route: 065
     Dates: start: 198501, end: 202001
  8. ZANTAC [Suspect]
     Active Substance: RANITIDINE HYDROCHLORIDE
     Dosage: 300 MG, 1 - 3 TIMES A DAY
     Route: 065
     Dates: start: 198501, end: 202001
  9. RANITIDINE HYDROCHLORIDE [Suspect]
     Active Substance: RANITIDINE HYDROCHLORIDE
     Indication: Intestinal ulcer
     Dosage: 150 MG, QD
     Route: 065
     Dates: start: 198501, end: 202001
  10. RANITIDINE HYDROCHLORIDE [Suspect]
     Active Substance: RANITIDINE HYDROCHLORIDE
     Dosage: 150 MG,1 - 3 TIMES A DAY
     Route: 065
     Dates: start: 198501, end: 202001
  11. RANITIDINE HYDROCHLORIDE [Suspect]
     Active Substance: RANITIDINE HYDROCHLORIDE
     Dosage: 300 MG, QD
     Route: 065
     Dates: start: 198501, end: 202001
  12. RANITIDINE HYDROCHLORIDE [Suspect]
     Active Substance: RANITIDINE HYDROCHLORIDE
     Dosage: 300 MG, 1 - 3 TIMES A DAY
     Route: 065
     Dates: start: 198501, end: 202001
  13. RANITIDINE HYDROCHLORIDE [Suspect]
     Active Substance: RANITIDINE HYDROCHLORIDE
     Indication: Intestinal ulcer
     Dosage: 150 MG, QD
     Route: 065
     Dates: start: 198501, end: 202001
  14. RANITIDINE HYDROCHLORIDE [Suspect]
     Active Substance: RANITIDINE HYDROCHLORIDE
     Dosage: 150 MG, 1 - 3 TIMES A DAY
     Route: 065
     Dates: start: 198501, end: 202001
  15. RANITIDINE HYDROCHLORIDE [Suspect]
     Active Substance: RANITIDINE HYDROCHLORIDE
     Dosage: 300 MG, QD
     Route: 065
     Dates: start: 198501, end: 202001
  16. RANITIDINE HYDROCHLORIDE [Suspect]
     Active Substance: RANITIDINE HYDROCHLORIDE
     Dosage: 300 MG, 1 - 3 TIMES A DAY
     Route: 065
     Dates: start: 198501, end: 202001
  17. RANITIDINE [Suspect]
     Active Substance: RANITIDINE
     Indication: Intestinal ulcer
     Dosage: 150 MG, QD
     Route: 065
     Dates: start: 198501, end: 202001
  18. RANITIDINE [Suspect]
     Active Substance: RANITIDINE
     Dosage: 150 MG, 1 - 3 TIMES A DAY
     Route: 065
     Dates: start: 198501, end: 202001
  19. RANITIDINE [Suspect]
     Active Substance: RANITIDINE
     Dosage: 300 MG, QD
     Route: 065
     Dates: start: 198501, end: 202001
  20. RANITIDINE [Suspect]
     Active Substance: RANITIDINE
     Dosage: 300 MG, 1 - 3 TIMES A DAY
     Route: 065
     Dates: start: 198501, end: 202001
  21. RANITIDINE [Suspect]
     Active Substance: RANITIDINE
     Indication: Intestinal ulcer
     Dosage: 150 MG, QD
     Route: 065
     Dates: start: 198501, end: 202001
  22. RANITIDINE [Suspect]
     Active Substance: RANITIDINE
     Dosage: 150 MG, 1 - 3 TIMES A DAY
     Route: 065
     Dates: start: 198501, end: 202001
  23. RANITIDINE [Suspect]
     Active Substance: RANITIDINE
     Dosage: 300 MG, QD
     Route: 065
     Dates: start: 198501, end: 202001
  24. RANITIDINE [Suspect]
     Active Substance: RANITIDINE
     Dosage: 300 MG, 1 - 3 TIMES A DAY
     Route: 065
     Dates: start: 198501, end: 202001

REACTIONS (1)
  - Renal cancer [Unknown]
